APPROVED DRUG PRODUCT: MITHRACIN
Active Ingredient: PLICAMYCIN
Strength: 2.5MG/VIAL
Dosage Form/Route: INJECTABLE;INJECTION
Application: N050109 | Product #001
Applicant: PFIZER LABORATORIES DIV PFIZER INC
Approved: Approved Prior to Jan 1, 1982 | RLD: No | RS: No | Type: DISCN